FAERS Safety Report 7784439-2 (Version None)
Quarter: 2011Q3

REPORT INFORMATION
  Report Type: 
  Country: None (occurrence: None)
  Receive Date: 20110928
  Receipt Date: 20110919
  Transmission Date: 20111222
  Serious: Yes (Hospitalization)
  Sender: FDA-Public Use
  Company Number: US-BAYER-2011-048629

PATIENT
  Age: 29 Year
  Sex: Female
  Weight: 95.238 kg

DRUGS (5)
  1. EFFEXOR [Concomitant]
     Indication: WEIGHT DECREASED
     Route: 048
  2. YAZ [Suspect]
     Indication: ACNE
  3. YAZ [Suspect]
     Indication: CONTRACEPTION
     Dosage: UNK
     Dates: start: 20070301, end: 20090401
  4. DROSPIRENONE AND ETHINYL ESTRADIOL [Suspect]
  5. IBUPROFEN (ADVIL) [Concomitant]

REACTIONS (3)
  - CHOLELITHIASIS [None]
  - PAIN [None]
  - CHOLECYSTITIS CHRONIC [None]
